FAERS Safety Report 11177105 (Version 1)
Quarter: 2015Q2

REPORT INFORMATION
  Report Type: Spontaneous
  Country: US (occurrence: None)
  Receive Date: 20150609
  Receipt Date: 20150609
  Transmission Date: 20150821
  Serious: No
  Sender: FDA-Public Use
  Company Number: None

PATIENT
  Age: 58 Year
  Sex: Female

DRUGS (1)
  1. BOTOX [Suspect]
     Active Substance: ONABOTULINUMTOXINA
     Indication: FACIAL NERVE DISORDER
     Route: 030
     Dates: start: 20150126, end: 20150606

REACTIONS (2)
  - Constipation [None]
  - Adverse drug reaction [None]

NARRATIVE: CASE EVENT DATE: 20150330
